FAERS Safety Report 8591026-5 (Version None)
Quarter: 2012Q3

REPORT INFORMATION
  Report Type: 
  Country: None (occurrence: None)
  Receive Date: 20120813
  Receipt Date: 20120807
  Transmission Date: 20120928
  Serious: Yes (Other)
  Sender: FDA-Public Use
  Company Number: JP-VERTEX PHARMACEUTICALS INC.-AE-2012-002370

PATIENT
  Age: 63 Year
  Sex: Male

DRUGS (23)
  1. REBETOL [Concomitant]
     Route: 048
     Dates: start: 20120611, end: 20120617
  2. LEBARAMINE [Concomitant]
     Route: 048
     Dates: end: 20120226
  3. FERROUS CITRATE [Concomitant]
     Route: 048
  4. TELAVIC (TELAPREVIR) [Suspect]
     Route: 048
     Dates: start: 20120213, end: 20120213
  5. TELAVIC (TELAPREVIR) [Suspect]
     Route: 048
     Dates: start: 20120305, end: 20120507
  6. REBETOL [Concomitant]
     Route: 048
     Dates: start: 20120227, end: 20120318
  7. PRIMPERAN TAB [Concomitant]
     Route: 048
     Dates: start: 20120213, end: 20120214
  8. REBETOL [Concomitant]
     Route: 048
     Dates: start: 20120319, end: 20120416
  9. URSO 250 [Concomitant]
     Route: 048
  10. MIYA BM [Concomitant]
     Route: 048
     Dates: start: 20120213, end: 20120219
  11. URSO 250 [Concomitant]
     Route: 048
     Dates: start: 20120101, end: 20120603
  12. ALBUMIN TANNATE [Concomitant]
     Route: 048
     Dates: start: 20120213, end: 20120219
  13. REBETOL [Concomitant]
     Route: 048
     Dates: start: 20120522, end: 20120528
  14. URSO 250 [Concomitant]
     Route: 048
     Dates: start: 20120611, end: 20120629
  15. PROHEPARUM [Concomitant]
     Route: 048
     Dates: start: 20120227
  16. ALLOPURINOL [Concomitant]
     Route: 048
     Dates: start: 20120312
  17. TELAVIC (TELAPREVIR) [Suspect]
     Indication: HEPATITIS C
     Route: 048
     Dates: start: 20120210, end: 20120212
  18. REBETOL [Concomitant]
     Route: 048
     Dates: start: 20120604, end: 20120610
  19. REBETOL [Concomitant]
     Route: 048
     Dates: start: 20120618
  20. CLOBETASOL PROPIONATE [Concomitant]
     Route: 061
     Dates: start: 20120212
  21. PEGINTFERON ALFA-2B [Concomitant]
     Indication: HEPATITIS C
     Route: 058
     Dates: start: 20120210
  22. REBETOL [Concomitant]
     Indication: HEPATITIS C
     Route: 048
     Dates: start: 20120210, end: 20120213
  23. REBETOL [Concomitant]
     Route: 048
     Dates: start: 20120417, end: 20120521

REACTIONS (8)
  - RASH [None]
  - DEHYDRATION [None]
  - MALAISE [None]
  - ANAEMIA [None]
  - PYREXIA [None]
  - DECREASED APPETITE [None]
  - NAUSEA [None]
  - RENAL FAILURE [None]
